FAERS Safety Report 19795887 (Version 1)
Quarter: 2021Q3

REPORT INFORMATION
  Report Type: Other
  Country: ES (occurrence: ES)
  Receive Date: 20210907
  Receipt Date: 20210907
  Transmission Date: 20211014
  Serious: Yes (Hospitalization, Other)
  Sender: FDA-Public Use
  Company Number: ES-GUARDIAN DRUG COMPANY-2118053

PATIENT
  Age: 68 Year
  Sex: Male

DRUGS (1)
  1. CHILDRENS IBUPROFEN [Suspect]
     Active Substance: IBUPROFEN
     Indication: COVID-19
     Route: 065

REACTIONS (1)
  - Neutropenia [Recovered/Resolved]
